FAERS Safety Report 17931657 (Version 2)
Quarter: 2020Q3

REPORT INFORMATION
  Report Type: Spontaneous
  Country: DE (occurrence: DE)
  Receive Date: 20200624
  Receipt Date: 20200926
  Transmission Date: 20201103
  Serious: Yes (Other)
  Sender: FDA-Public Use
  Company Number: DE-B.I. PHARMACEUTICALS,INC./RIDGEFIELD-2020-BI-031236

PATIENT
  Age: 70 Year
  Sex: Male

DRUGS (1)
  1. PRADAXA [Suspect]
     Active Substance: DABIGATRAN ETEXILATE MESYLATE
     Indication: ATRIAL FIBRILLATION
     Route: 048
     Dates: start: 20200107, end: 20200619

REACTIONS (6)
  - Tongue neoplasm malignant stage unspecified [Unknown]
  - Paresis [Not Recovered/Not Resolved]
  - Tongue cancer recurrent [Unknown]
  - Tooth extraction [Unknown]
  - Cerebrovascular accident [Unknown]
  - Mastication disorder [Unknown]
